FAERS Safety Report 7472125-8 (Version None)
Quarter: 2011Q2

REPORT INFORMATION
  Report Type: 
  Country: None (occurrence: None)
  Receive Date: 20110511
  Receipt Date: 20110114
  Transmission Date: 20111010
  Serious: No
  Sender: FDA-Public Use
  Company Number: A0906192A

PATIENT
  Age: 75 Year
  Sex: Female

DRUGS (7)
  1. CENTRUM SILVER [Concomitant]
  2. CALTRATE + D [Concomitant]
  3. VITAMIN D [Concomitant]
  4. DIOVAN [Concomitant]
  5. TYKERB [Suspect]
     Indication: BREAST CANCER
     Dosage: 1250MG PER DAY
     Route: 048
     Dates: start: 20110107
  6. OMEPRAZOLE [Concomitant]
  7. ANASTROZOLE [Concomitant]

REACTIONS (1)
  - DIARRHOEA [None]
